FAERS Safety Report 16591609 (Version 1)
Quarter: 2019Q3

REPORT INFORMATION
  Report Type: Spontaneous
  Country: US (occurrence: US)
  Receive Date: 20190718
  Receipt Date: 20190718
  Transmission Date: 20191004
  Serious: No
  Sender: FDA-Public Use
  Company Number: US-FERRINGPH-2018FE04742

PATIENT
  Age: 16 Year
  Sex: Male
  Weight: 37 kg

DRUGS (1)
  1. ZOMACTON [Suspect]
     Active Substance: SOMATROPIN
     Indication: GROWTH HORMONE DEFICIENCY
     Dosage: 10 MG, UNK
     Route: 065

REACTIONS (2)
  - Anxiety [Unknown]
  - Syringe issue [Unknown]
